FAERS Safety Report 6535765-6 (Version None)
Quarter: 2010Q1

REPORT INFORMATION
  Report Type: 
  Country: None (occurrence: None)
  Receive Date: 20100113
  Receipt Date: 20100104
  Transmission Date: 20100710
  Serious: Yes (Hospitalization)
  Sender: FDA-Public Use
  Company Number: FR-ASTRAZENECA-2010SE00198

PATIENT
  Age: 30619 Day
  Sex: Male

DRUGS (4)
  1. NEXIUM [Suspect]
     Route: 048
     Dates: start: 20090926
  2. AMOXICILLINE PANPHARMA [Suspect]
     Indication: ENDOCARDITIS
     Dates: start: 20090917
  3. RIFADIN [Suspect]
     Indication: ENDOCARDITIS
     Dates: start: 20090923
  4. GENTAMICINE [Concomitant]
     Indication: ENDOCARDITIS
     Dates: start: 20090917, end: 20090923

REACTIONS (1)
  - DRUG RASH WITH EOSINOPHILIA AND SYSTEMIC SYMPTOMS [None]
